FAERS Safety Report 24409124 (Version 1)
Quarter: 2024Q4

REPORT INFORMATION
  Report Type: Report from Study
  Country: BE (occurrence: BE)
  Receive Date: 20241008
  Receipt Date: 20241008
  Transmission Date: 20250115
  Serious: Yes (Hospitalization, Other)
  Sender: ABBVIE
  Company Number: BE-ABBVIE-5952787

PATIENT
  Sex: Male

DRUGS (11)
  1. CARBIDOPA\LEVODOPA [Suspect]
     Active Substance: CARBIDOPA\LEVODOPA
     Indication: Parkinson^s disease
     Dosage: MD: 2.0+3.0ML, CD: 3.9ML/H, ED: 2.50ML, CND: 2.0ML/H, DURING 24 HOURS
     Route: 050
     Dates: start: 20240729, end: 20240806
  2. CARBIDOPA\LEVODOPA [Suspect]
     Active Substance: CARBIDOPA\LEVODOPA
     Dosage: MD: 6.0ML, CD: 3.7ML/H, ED: 2.50ML DURING 16 HOURS
     Route: 050
     Dates: start: 20240223, end: 20240620
  3. CARBIDOPA\LEVODOPA [Suspect]
     Active Substance: CARBIDOPA\LEVODOPA
     Route: 050
     Dates: start: 20170612
  4. CARBIDOPA\LEVODOPA [Suspect]
     Active Substance: CARBIDOPA\LEVODOPA
     Dosage: MD: 5.0+3.0ML, CD: 3.9ML/H, ED: 1.50ML, CND: 2.0ML/H, DURING 24 HOURS
     Route: 050
     Dates: start: 20240821
  5. CARBIDOPA\LEVODOPA [Suspect]
     Active Substance: CARBIDOPA\LEVODOPA
     Dosage: ED: 1.50ML, CND: 2.0ML/H, DURING 24 HOURS
     Route: 050
     Dates: start: 20240806, end: 20240813
  6. CARBIDOPA\LEVODOPA [Suspect]
     Active Substance: CARBIDOPA\LEVODOPA
     Dosage: MD: 3.0ML, CD: 3.9ML/H, ED: 2.50ML, DURING 24 HOURS
     Route: 050
     Dates: start: 20240813, end: 20240821
  7. CARBIDOPA\LEVODOPA [Suspect]
     Active Substance: CARBIDOPA\LEVODOPA
     Dosage: MD: 6.0ML, CD: 3.7ML/H, ED: 2.50ML DURING 16 HOURS
     Route: 050
     Dates: start: 20240620, end: 20240729
  8. STALEVO [Concomitant]
     Active Substance: CARBIDOPA\ENTACAPONE\LEVODOPA
     Indication: Product used for unknown indication
     Dosage: FORM STRENGTH: 200, FREQUENCY TEXT: AT 6AM,9AM,12PM,3PM,6PM,9PM
  9. BENSERAZIDE\LEVODOPA [Concomitant]
     Active Substance: BENSERAZIDE\LEVODOPA
     Indication: Product used for unknown indication
     Dosage: FREQUENCY TEXT: AT 10PM
  10. AZILECT [Concomitant]
     Active Substance: RASAGILINE MESYLATE
     Indication: Product used for unknown indication
  11. PRAMIPEXOLE [Concomitant]
     Active Substance: PRAMIPEXOLE\PRAMIPEXOLE DIHYDROCHLORIDE
     Indication: Product used for unknown indication
     Dosage: FORM STRENGTH: 3.15 MILLIGRAM, FREQUENCY TEXT: AT 8 AM AND 5 PM

REACTIONS (1)
  - Prostatic operation [Unknown]
